FAERS Safety Report 5354478-X (Version None)
Quarter: 2007Q2

REPORT INFORMATION
  Report Type: 
  Country: None (occurrence: None)
  Receive Date: 20070612
  Receipt Date: 20070605
  Transmission Date: 20071010
  Serious: Yes (Hospitalization)
  Sender: FDA-Public Use
  Company Number: FR-SANOFI-SYNTHELABO-A02200701313

PATIENT
  Age: 78 Year
  Sex: Female

DRUGS (13)
  1. CLAMOXYL [Concomitant]
     Indication: PNEUMONIA STREPTOCOCCAL
     Dosage: UNK
     Route: 065
     Dates: start: 20061201
  2. ERYTHROCINE [Concomitant]
     Indication: PNEUMONIA STREPTOCOCCAL
     Dosage: UNK
     Route: 065
     Dates: start: 20061201
  3. TARGOCID [Concomitant]
     Indication: PNEUMONIA STREPTOCOCCAL
     Dosage: UNK
     Route: 065
     Dates: start: 20061223
  4. AMIKLIN [Concomitant]
     Indication: PNEUMONIA STREPTOCOCCAL
     Dosage: UNK
     Route: 065
     Dates: start: 20061223
  5. TIENAM [Concomitant]
     Indication: PNEUMONIA STREPTOCOCCAL
     Dosage: UNK
     Route: 065
     Dates: start: 20061223
  6. TAVANIC [Concomitant]
     Indication: RALES
     Dosage: UNK
     Route: 065
     Dates: start: 20061201
  7. TAHOR [Suspect]
     Indication: DRUG USE FOR UNKNOWN INDICATION
     Dosage: 80 MG
     Route: 048
     Dates: start: 20061115
  8. TENORMIN [Suspect]
     Indication: DRUG USE FOR UNKNOWN INDICATION
     Route: 048
     Dates: start: 20061115
  9. PLAVIX [Suspect]
     Indication: MYOCARDIAL INFARCTION
     Route: 048
     Dates: start: 20061115, end: 20070115
  10. PLAVIX [Suspect]
     Indication: CORONARY ARTERIAL STENT INSERTION
     Route: 048
     Dates: start: 20061115, end: 20070115
  11. KARDEGIC [Suspect]
     Indication: MYOCARDIAL INFARCTION
     Route: 048
     Dates: start: 20061115
  12. KARDEGIC [Suspect]
     Indication: CORONARY ARTERIAL STENT INSERTION
     Route: 048
     Dates: start: 20061115
  13. TRIATEC [Suspect]
     Route: 048
     Dates: start: 20061115, end: 20070115

REACTIONS (1)
  - EOSINOPHILIC PNEUMONIA [None]
